FAERS Safety Report 10963796 (Version 3)
Quarter: 2016Q2

REPORT INFORMATION
  Report Type: Spontaneous
  Country: US (occurrence: US)
  Receive Date: 20150328
  Receipt Date: 20160506
  Transmission Date: 20160815
  Serious: Yes (Other)
  Sender: FDA-Public Use
  Company Number: US-JNJFOC-20140513111

PATIENT
  Sex: Female

DRUGS (2)
  1. DURAGESIC [Suspect]
     Active Substance: FENTANYL
     Indication: PAIN
     Route: 062
     Dates: end: 2014
  2. DURAGESIC [Suspect]
     Active Substance: FENTANYL
     Indication: PAIN
     Route: 062
     Dates: start: 1998

REACTIONS (15)
  - Weight decreased [Not Recovered/Not Resolved]
  - Back pain [Not Recovered/Not Resolved]
  - Gait disturbance [Not Recovered/Not Resolved]
  - Constipation [Unknown]
  - Myalgia [Recovered/Resolved]
  - Back pain [Not Recovered/Not Resolved]
  - Product packaging issue [Unknown]
  - Urinary retention [Unknown]
  - Sneezing [Not Recovered/Not Resolved]
  - Decreased appetite [Not Recovered/Not Resolved]
  - Adverse event [Unknown]
  - Muscle spasms [Recovered/Resolved]
  - Cystitis [Unknown]
  - Arthralgia [Not Recovered/Not Resolved]
  - Pain [Not Recovered/Not Resolved]

NARRATIVE: CASE EVENT DATE: 2014
